FAERS Safety Report 14152179 (Version 6)
Quarter: 2019Q1

REPORT INFORMATION
  Report Type: Report from Study
  Country: JP (occurrence: JP)
  Receive Date: 20171102
  Receipt Date: 20190314
  Transmission Date: 20190417
  Serious: Yes (Death, Life-Threatening, Hospitalization, Disabling, Other)
  Sender: FDA-Public Use
  Company Number: JP-ACTELION-A-CH2017-149239

PATIENT
  Age: 63 Year
  Sex: Female
  Weight: 48.1 kg

DRUGS (15)
  1. MAGNESIUM OXIDE. [Concomitant]
     Active Substance: MAGNESIUM OXIDE
  2. TAKECAB [Suspect]
     Active Substance: VONOPRAZAN FUMURATE
     Indication: CHRONIC GASTRITIS
     Dosage: 10 MG, QD
     Route: 048
     Dates: start: 20170329, end: 20180627
  3. ADEMPAS [Concomitant]
     Active Substance: RIOCIGUAT
  4. GASTER [Concomitant]
     Active Substance: FAMOTIDINE
  5. GLUCONSAN K [Concomitant]
     Active Substance: POTASSIUM GLUCONATE
  6. REGPARA [Concomitant]
     Active Substance: CINACALCET HYDROCHLORIDE
  7. OPSUMIT [Suspect]
     Active Substance: MACITENTAN
     Indication: PULMONARY ARTERIAL HYPERTENSION
     Dosage: 10 MG, QD
     Route: 048
     Dates: start: 20160907, end: 20190101
  8. BONALON [Concomitant]
     Active Substance: ALENDRONATE SODIUM
  9. URSO [Concomitant]
     Active Substance: URSODIOL
  10. KANAMYCIN MONOSULFATE [Concomitant]
  11. TRAZENTA [Concomitant]
     Active Substance: LINAGLIPTIN
  12. LIVACT [Concomitant]
     Active Substance: AMINO ACIDS
  13. MONILAC [Concomitant]
     Active Substance: LACTULOSE
  14. GLAKAY [Concomitant]
     Active Substance: MENATETRENONE
  15. LASIX [Concomitant]
     Active Substance: FUROSEMIDE

REACTIONS (15)
  - Blood creatinine increased [Not Recovered/Not Resolved]
  - Ascites [Recovering/Resolving]
  - Hepatic encephalopathy [Recovering/Resolving]
  - Pancytopenia [Recovering/Resolving]
  - Hyperuricaemia [Recovering/Resolving]
  - Weight increased [Recovering/Resolving]
  - Weight decreased [Recovering/Resolving]
  - Radius fracture [Recovered/Resolved]
  - Hepatocellular carcinoma [Fatal]
  - Hepatic function abnormal [Unknown]
  - Abdominal distension [Recovering/Resolving]
  - Swelling [Recovering/Resolving]
  - Peritonitis bacterial [Recovering/Resolving]
  - White blood cell count decreased [Recovering/Resolving]
  - Anaemia [Recovering/Resolving]

NARRATIVE: CASE EVENT DATE: 201610
